FAERS Safety Report 6417499-1 (Version None)
Quarter: 2009Q4

REPORT INFORMATION
  Report Type: 
  Country: None (occurrence: None)
  Receive Date: 20091027
  Receipt Date: 20091027
  Transmission Date: 20100525
  Serious: Yes (Hospitalization)
  Sender: FDA-Public Use
  Company Number: None

PATIENT
  Sex: Female
  Weight: 55 kg

DRUGS (2)
  1. CISPLATIN [Suspect]
     Dosage: 78 MG
  2. ALIMTA [Suspect]
     Dosage: 775 MG

REACTIONS (5)
  - CERVIX DISORDER [None]
  - HYDRONEPHROSIS [None]
  - HYDROURETER [None]
  - MASS [None]
  - VAGINAL HAEMORRHAGE [None]
